FAERS Safety Report 5614625-9 (Version None)
Quarter: 2008Q1

REPORT INFORMATION
  Report Type: 
  Country: None (occurrence: None)
  Receive Date: 20080131
  Receipt Date: 20080122
  Transmission Date: 20080703
  Serious: Yes (Hospitalization, Other)
  Sender: FDA-Public Use
  Company Number: 18249

PATIENT
  Age: 44 Year
  Sex: Female

DRUGS (4)
  1. CARBOPLATIN [Suspect]
     Indication: OVARIAN CANCER
     Dosage: 792 MG PER_CYCLE IV
     Route: 042
  2. PACLITAXEL [Concomitant]
  3. SODIUM CHLORIDE [Concomitant]
  4. DEXAMETHASONE TAB [Concomitant]

REACTIONS (10)
  - COSTOVERTEBRAL ANGLE TENDERNESS [None]
  - DRUG TOXICITY [None]
  - HAEMOGLOBIN DECREASED [None]
  - HYDRONEPHROSIS [None]
  - POISONING [None]
  - RED BLOOD CELLS URINE [None]
  - RENAL FAILURE ACUTE [None]
  - RENAL HAEMORRHAGE [None]
  - THROMBOSIS [None]
  - WHITE BLOOD CELLS URINE POSITIVE [None]
